FAERS Safety Report 10865651 (Version 1)
Quarter: 2015Q1

REPORT INFORMATION
  Report Type: Report from Study
  Country: US (occurrence: US)
  Receive Date: 20150224
  Receipt Date: 20150224
  Transmission Date: 20150721
  Serious: No
  Sender: FDA-Public Use
  Company Number: US-MYLANLABS-2014S1015308

PATIENT
  Age: 28 Year
  Sex: Female
  Weight: 54 kg

DRUGS (10)
  1. CLARAVIS [Suspect]
     Active Substance: ISOTRETINOIN
     Indication: ACNE CYSTIC
  2. YAZ [Concomitant]
     Active Substance: DROSPIRENONE\ETHINYL ESTRADIOL
     Indication: CONTRACEPTION
     Dosage: UNK
     Dates: end: 201405
  3. AMNESTEEM [Suspect]
     Active Substance: ISOTRETINOIN
     Indication: ACNE CYSTIC
     Dosage: 20 MG,QD
     Route: 048
     Dates: start: 20140310, end: 20140414
  4. CLARAVIS [Suspect]
     Active Substance: ISOTRETINOIN
     Dosage: 30 MG,QD
     Route: 048
     Dates: start: 20140415, end: 20140512
  5. AMNESTEEM [Suspect]
     Active Substance: ISOTRETINOIN
     Indication: ACNE
     Dosage: 20 MG,QD
     Route: 048
     Dates: start: 20140310, end: 20140414
  6. AMNESTEEM [Suspect]
     Active Substance: ISOTRETINOIN
     Indication: ACNE CYSTIC
     Dosage: 20 MG,QD
     Route: 048
     Dates: start: 20140519, end: 20140521
  7. TOPAMAX [Concomitant]
     Active Substance: TOPIRAMATE
     Dosage: UNK
     Dates: start: 20140415, end: 20140519
  8. AMNESTEEM [Suspect]
     Active Substance: ISOTRETINOIN
     Indication: ACNE
     Dosage: 20 MG,QD
     Route: 048
     Dates: start: 20140519, end: 20140521
  9. CLARAVIS [Suspect]
     Active Substance: ISOTRETINOIN
     Indication: ACNE
  10. LYRICA [Concomitant]
     Active Substance: PREGABALIN
     Dosage: UNK
     Dates: start: 20140415, end: 20140519

REACTIONS (2)
  - Myalgia [Recovered/Resolved]
  - Arthralgia [Recovered/Resolved]

NARRATIVE: CASE EVENT DATE: 20140328
